FAERS Safety Report 19163474 (Version 1)
Quarter: 2021Q2

REPORT INFORMATION
  Report Type: Spontaneous
  Country: US (occurrence: US)
  Receive Date: 20210420
  Receipt Date: 20210420
  Transmission Date: 20210717
  Serious: No
  Sender: FDA-Public Use
  Company Number: None

PATIENT
  Age: 74 Year
  Sex: Female
  Weight: 63 kg

DRUGS (3)
  1. BAMLANIVIMAB/ETESEVIMAB [Suspect]
     Active Substance: BAMLANIVIMAB\ETESEVIMAB
     Indication: COVID-19
     Dosage: ?          OTHER FREQUENCY:ONCE;?
     Route: 042
     Dates: start: 20210416, end: 20210416
  2. ETESEVIMAB. [Concomitant]
     Active Substance: ETESEVIMAB
     Dates: start: 20210416, end: 20210416
  3. BAMLANIVIMAB. [Concomitant]
     Active Substance: BAMLANIVIMAB
     Dates: start: 20210416, end: 20210416

REACTIONS (2)
  - Hallucination [None]
  - Cough [None]

NARRATIVE: CASE EVENT DATE: 20210420
